FAERS Safety Report 11607693 (Version 3)
Quarter: 2016Q2

REPORT INFORMATION
  Report Type: Spontaneous
  Country: IT (occurrence: IT)
  Receive Date: 20151007
  Receipt Date: 20160420
  Transmission Date: 20160815
  Serious: Yes (Hospitalization)
  Sender: FDA-Public Use
  Company Number: IT-PFIZER INC-2015333243

PATIENT
  Age: 51 Year
  Sex: Female

DRUGS (2)
  1. XANAX [Suspect]
     Active Substance: ALPRAZOLAM
     Indication: ANXIETY
     Dosage: 2 MG, DAILY
     Route: 048
     Dates: start: 20050930, end: 20150930
  2. STILNOX [Suspect]
     Active Substance: ZOLPIDEM TARTRATE
     Indication: ANXIETY
     Dosage: 80 MG, DAILY
     Route: 048
     Dates: start: 20050930, end: 20150930

REACTIONS (1)
  - Drug dependence [Unknown]

NARRATIVE: CASE EVENT DATE: 20150930
